FAERS Safety Report 18019151 (Version 2)
Quarter: 2024Q3

REPORT INFORMATION
  Report Type: Spontaneous
  Country: JP (occurrence: JP)
  Receive Date: 20200714
  Receipt Date: 20240916
  Transmission Date: 20241017
  Serious: Yes (Hospitalization)
  Sender: SANOFI AVENTIS
  Company Number: JP-SA-2020SA150231

PATIENT
  Age: 82 Year
  Sex: Male

DRUGS (18)
  1. DUPIXENT [Suspect]
     Active Substance: DUPILUMAB
     Indication: Dermatitis atopic
     Dosage: 300 MG, QOW
     Route: 058
     Dates: start: 20200507, end: 20200618
  2. DUPIXENT [Suspect]
     Active Substance: DUPILUMAB
     Dosage: 300 MG, QOW
     Route: 058
     Dates: start: 20200716, end: 202103
  3. DUPIXENT [Suspect]
     Active Substance: DUPILUMAB
     Dosage: 300 MG, Q4W
     Route: 058
     Dates: start: 202104, end: 202301
  4. DUPIXENT [Suspect]
     Active Substance: DUPILUMAB
     Dosage: 300 MG, Q8W
     Route: 058
     Dates: start: 202302, end: 202304
  5. DUPIXENT [Suspect]
     Active Substance: DUPILUMAB
     Dosage: 300 MG, Q6W
     Route: 058
     Dates: start: 20230408, end: 20230815
  6. DUPIXENT [Suspect]
     Active Substance: DUPILUMAB
     Dosage: 300 MG, QOW
     Route: 058
     Dates: start: 20240109
  7. ALLEGRA [Concomitant]
     Active Substance: FEXOFENADINE HYDROCHLORIDE
     Indication: Dermatitis atopic
     Dosage: 60 MG, QD (BEFORE SUPPER)
     Route: 048
     Dates: start: 20180801, end: 202006
  8. BILASTINE [Concomitant]
     Active Substance: BILASTINE
     Indication: Dermatitis atopic
     Dosage: 20 MG, QD (AT BEDTIME)
     Route: 048
     Dates: start: 20180801
  9. SINGULAIR [Concomitant]
     Active Substance: MONTELUKAST SODIUM
     Indication: Dermatitis atopic
     Dosage: 10 MG, QD (AT BEDTIME)
     Route: 048
     Dates: start: 20180801, end: 202006
  10. GLYCOSAMINOGLYCANS [Concomitant]
     Active Substance: GLYCOSAMINOGLYCANS
     Indication: Dermatitis atopic
     Dosage: 3 OR 4 TIMES/DAY (SYSTEMIC)
     Route: 061
     Dates: start: 20180801
  11. BETAMETHASONE DIPROPIONATE [Concomitant]
     Active Substance: BETAMETHASONE DIPROPIONATE
     Indication: Dermatitis atopic
     Dosage: ONCE OR TWICE A DAY (EXCEPT FACE, ECZEMA AREA)
     Route: 061
     Dates: start: 20180801
  12. SILODOSIN [Concomitant]
     Active Substance: SILODOSIN
     Indication: Product used for unknown indication
     Route: 065
  13. AMLODIPINE BESYLATE [Concomitant]
     Active Substance: AMLODIPINE BESYLATE
     Indication: Product used for unknown indication
     Route: 065
  14. FEBUXOSTAT [Concomitant]
     Active Substance: FEBUXOSTAT
     Indication: Product used for unknown indication
     Route: 065
  15. CANDESARTAN [Concomitant]
     Active Substance: CANDESARTAN
     Indication: Product used for unknown indication
     Route: 065
  16. NEXIUM [Concomitant]
     Active Substance: ESOMEPRAZOLE MAGNESIUM
     Indication: Product used for unknown indication
     Dosage: 1 DF, QD (AFTER SUPPER)
     Route: 048
  17. BROTIZOLAM [Concomitant]
     Active Substance: BROTIZOLAM
     Indication: Insomnia
     Dosage: 1 DF, PRN (WHEN THE PATIENT HAD SLEEPLESSNESS)
     Route: 048
  18. PROTOPIC [Concomitant]
     Active Substance: TACROLIMUS
     Indication: Dermatitis atopic
     Dosage: ONCE OR TWICE A DAY (ECZEMA AREA ON FACE, TRUNK, AND EXTREMITIES)
     Route: 061
     Dates: start: 20180801, end: 202103

REACTIONS (11)
  - Giant cell arteritis [Not Recovered/Not Resolved]
  - Pyrexia [Not Recovered/Not Resolved]
  - Headache [Not Recovered/Not Resolved]
  - Pain of skin [Not Recovered/Not Resolved]
  - Claudication of jaw muscles [Not Recovered/Not Resolved]
  - Visual acuity reduced [Recovering/Resolving]
  - Tinea pedis [Unknown]
  - Dermatophytosis of nail [Unknown]
  - Conjunctivitis [Recovered/Resolved]
  - Conjunctival hyperaemia [Recovered/Resolved]
  - Off label use [Unknown]

NARRATIVE: CASE EVENT DATE: 20200601
